FAERS Safety Report 5286133-9 (Version None)
Quarter: 2007Q2

REPORT INFORMATION
  Report Type: 
  Country: None (occurrence: None)
  Receive Date: 20070404
  Receipt Date: 20070329
  Transmission Date: 20071010
  Serious: Yes (Death, Life-Threatening, Hospitalization)
  Sender: FDA-Public Use
  Company Number: US-AVENTIS-200618867US

PATIENT
  Sex: Female
  Weight: 64 kg

DRUGS (1)
  1. TAXOTERE [Suspect]

REACTIONS (4)
  - CATHETER SITE ERYTHEMA [None]
  - ESCHAR [None]
  - LUNG NEOPLASM MALIGNANT [None]
  - SKIN NECROSIS [None]
